FAERS Safety Report 23627889 (Version 1)
Quarter: 2024Q1

REPORT INFORMATION
  Report Type: Spontaneous
  Country: US (occurrence: US)
  Receive Date: 20240313
  Receipt Date: 20240313
  Transmission Date: 20240410
  Serious: Yes (Hospitalization, Other)
  Sender: FDA-Public Use
  Company Number: US-BEH-2024169487

PATIENT
  Age: 9 Year
  Sex: Male

DRUGS (2)
  1. HUMATE-P [Suspect]
     Active Substance: HUMAN COAGULATION FACTOR VIII/VON WILLEBRAND FACTOR COMPLEX
     Indication: Von Willebrand^s disease
     Dosage: 1545 RCOF UNITS (1391-1699) AS NEEDED FOR MINOR BLEEDING
     Route: 042
     Dates: start: 202401
  2. HUMATE-P [Suspect]
     Active Substance: HUMAN COAGULATION FACTOR VIII/VON WILLEBRAND FACTOR COMPLEX
     Dosage: 2000 RCOF UNITS (1800-2200) AS NEEDED FOR SEVERE BLEEDING
     Route: 042
     Dates: start: 202401

REACTIONS (1)
  - Haematemesis [Unknown]
